FAERS Safety Report 20351029 (Version 1)
Quarter: 2022Q1

REPORT INFORMATION
  Report Type: Spontaneous
  Country: US (occurrence: None)
  Receive Date: 20220118
  Receipt Date: 20220118
  Transmission Date: 20220423
  Serious: Yes (Hospitalization)
  Sender: FDA-Public Use
  Company Number: None

PATIENT
  Age: 76 Year
  Sex: Male

DRUGS (17)
  1. CASIRIVIMAB\IMDEVIMAB [Suspect]
     Active Substance: CASIRIVIMAB\IMDEVIMAB
     Indication: COVID-19
     Dosage: OTHER FREQUENCY : ONCE;?
     Route: 058
     Dates: start: 20220104, end: 20220104
  2. AMLODIPINE [Concomitant]
     Active Substance: AMLODIPINE BESYLATE
  3. BUSPIRONE [Concomitant]
     Active Substance: BUSPIRONE HYDROCHLORIDE
  4. CLOPIDOGREL [Concomitant]
     Active Substance: CLOPIDOGREL BISULFATE
  5. FUROSEMIDE [Concomitant]
     Active Substance: FUROSEMIDE
  6. METFORMIN HYDROCHLORIDE [Concomitant]
     Active Substance: METFORMIN HYDROCHLORIDE
  7. POTASSIUM CHLORIDE [Concomitant]
     Active Substance: POTASSIUM CHLORIDE
  8. ROSUVASTATIN [Concomitant]
     Active Substance: ROSUVASTATIN
  9. spirinolactone 50mg [Concomitant]
  10. terazosin 10mg [Concomitant]
  11. albuterol HFA 90mcg/actuation [Concomitant]
  12. erythromycin 0.5% opthalmic ointment [Concomitant]
  13. nitroglycerin 0.4mg SL tabs [Concomitant]
  14. CLONIDINE [Concomitant]
     Active Substance: CLONIDINE
  15. GABAPENTIN [Concomitant]
     Active Substance: GABAPENTIN
  16. MELOXICAM [Concomitant]
     Active Substance: MELOXICAM
  17. ROPINIROLE [Concomitant]
     Active Substance: ROPINIROLE

REACTIONS (4)
  - Acute respiratory failure [None]
  - Hypoxia [None]
  - Dizziness [None]
  - Lung opacity [None]

NARRATIVE: CASE EVENT DATE: 20220112
